FAERS Safety Report 11225559 (Version 1)
Quarter: 2015Q2

REPORT INFORMATION
  Report Type: Spontaneous
  Country: US (occurrence: US)
  Receive Date: 20150629
  Receipt Date: 20150629
  Transmission Date: 20150821
  Serious: Yes (Hospitalization)
  Sender: FDA-Public Use
  Company Number: US-GLAXOSMITHKLINE-US2015092229

PATIENT
  Age: 40 Year
  Sex: Female

DRUGS (9)
  1. LASIX [Concomitant]
     Active Substance: FUROSEMIDE
  2. CLIMARA [Concomitant]
     Active Substance: ESTRADIOL
  3. CARVEDILOL. [Suspect]
     Active Substance: CARVEDILOL
     Indication: CARDIAC FAILURE
  4. SYNTHROID [Concomitant]
     Active Substance: LEVOTHYROXINE SODIUM
  5. CARVEDILOL. [Suspect]
     Active Substance: CARVEDILOL
     Indication: EJECTION FRACTION DECREASED
     Dosage: 3.125 MG, BID
     Route: 048
     Dates: start: 20150312
  6. CARVEDILOL. [Suspect]
     Active Substance: CARVEDILOL
     Indication: BUNDLE BRANCH BLOCK LEFT
  7. XANAX [Concomitant]
     Active Substance: ALPRAZOLAM
  8. ZANTAC [Concomitant]
     Active Substance: RANITIDINE HYDROCHLORIDE
  9. LISINOPRIL. [Concomitant]
     Active Substance: LISINOPRIL

REACTIONS (5)
  - Hypotension [Unknown]
  - Cardiac disorder [Not Recovered/Not Resolved]
  - Asthenia [Not Recovered/Not Resolved]
  - Syncope [Recovered/Resolved]
  - Anxiety [Unknown]

NARRATIVE: CASE EVENT DATE: 20150312
